FAERS Safety Report 10067194 (Version 1)
Quarter: 2014Q2

REPORT INFORMATION
  Report Type: Spontaneous
  Country: US (occurrence: None)
  Receive Date: 20140408
  Receipt Date: 20140408
  Transmission Date: 20141212
  Serious: Yes (Disabling)
  Sender: FDA-Public Use
  Company Number: None

PATIENT
  Age: 44 Year
  Sex: Female
  Weight: 61.24 kg

DRUGS (1)
  1. LEVAQUIN 750MG [Suspect]
     Indication: URINARY TRACT INFECTION
     Route: 048
     Dates: start: 20140114, end: 20140119

REACTIONS (6)
  - Musculoskeletal pain [None]
  - Pain in extremity [None]
  - Tendon disorder [None]
  - Osteoarthritis [None]
  - Chondropathy [None]
  - Joint range of motion decreased [None]
